FAERS Safety Report 25148251 (Version 1)
Quarter: 2025Q2

REPORT INFORMATION
  Report Type: Spontaneous
  Country: SE (occurrence: SE)
  Receive Date: 20250402
  Receipt Date: 20250402
  Transmission Date: 20250716
  Serious: Yes (Disabling)
  Sender: SUNOVION
  Company Number: None

PATIENT

DRUGS (2)
  1. ESTRADIOL\NORETHINDRONE ACETATE\RELUGOLIX [Suspect]
     Active Substance: ESTRADIOL\NORETHINDRONE ACETATE\RELUGOLIX
     Indication: Endometriosis
     Route: 048
     Dates: start: 20240904
  2. LEVOTHYROXINE SODIUM [Concomitant]
     Active Substance: LEVOTHYROXINE SODIUM
     Route: 065

REACTIONS (2)
  - Hepatic enzyme increased [Unknown]
  - Benign breast neoplasm [Unknown]

NARRATIVE: CASE EVENT DATE: 20250301
